FAERS Safety Report 5679810-9 (Version None)
Quarter: 2008Q1

REPORT INFORMATION
  Report Type: 
  Country: None (occurrence: None)
  Receive Date: 20080321
  Receipt Date: 20071116
  Transmission Date: 20080703
  Serious: Yes (Other)
  Sender: FDA-Public Use
  Company Number: 2007EU002654

PATIENT
  Age: 45 Year
  Sex: Male

DRUGS (2)
  1. PROGRAF [Suspect]
     Indication: RENAL TRANSPLANT
     Dates: start: 19970101
  2. MYCOPHENOLATE MOFETIL [Suspect]
     Indication: RENAL TRANSPLANT
     Dosage: 1 G, UID/QD,
     Dates: start: 20030101

REACTIONS (8)
  - BRONCHITIS [None]
  - HAEMOPHILUS INFECTION [None]
  - HLA MARKER STUDY [None]
  - NEPHROSCLEROSIS [None]
  - PNEUMONIA [None]
  - PROTEINURIA [None]
  - RASH [None]
  - VARICELLA [None]
